FAERS Safety Report 21902980 (Version 2)
Quarter: 2023Q1

REPORT INFORMATION
  Report Type: Spontaneous
  Country: JP (occurrence: JP)
  Receive Date: 20230124
  Receipt Date: 20230208
  Transmission Date: 20230417
  Serious: Yes (Hospitalization)
  Sender: FDA-Public Use
  Company Number: JP-ABBVIE-4280934

PATIENT
  Age: 78 Year
  Sex: Male

DRUGS (7)
  1. KALETRA [Suspect]
     Active Substance: LOPINAVIR\RITONAVIR
     Indication: HIV infection
     Dosage: 4 TABLET
     Route: 048
     Dates: start: 20121207
  2. TRUVADA [Suspect]
     Active Substance: EMTRICITABINE\TENOFOVIR DISOPROXIL FUMARATE
     Indication: HIV infection
     Dosage: 1 TABLET
     Route: 048
  3. FAMOTIDINE [Concomitant]
     Active Substance: FAMOTIDINE
     Indication: Product used for unknown indication
  4. NAFTOPIDIL [Concomitant]
     Active Substance: NAFTOPIDIL
     Indication: Product used for unknown indication
     Dosage: 50 MILLIGRAM
     Route: 048
  5. TRIMEBUTINE MALEATE [Concomitant]
     Active Substance: TRIMEBUTINE MALEATE
     Indication: Product used for unknown indication
     Dosage: 100 MILLIGRAM
     Route: 048
  6. AMLODIPINE [Concomitant]
     Active Substance: AMLODIPINE BESYLATE
     Indication: Product used for unknown indication
     Dosage: 5 MILLIGRAM
     Route: 048
  7. DUTASTERIDE [Concomitant]
     Active Substance: DUTASTERIDE
     Indication: Product used for unknown indication
     Dosage: 0.5 MILLIGRAM
     Route: 048

REACTIONS (1)
  - Renal disorder [Unknown]
